FAERS Safety Report 14652505 (Version 1)
Quarter: 2018Q1

REPORT INFORMATION
  Report Type: Spontaneous
  Country: US (occurrence: US)
  Receive Date: 20180316
  Receipt Date: 20180316
  Transmission Date: 20180509
  Serious: Yes (Hospitalization)
  Sender: FDA-Public Use
  Company Number: None

PATIENT
  Age: 68 Year
  Sex: Female
  Weight: 90.26 kg

DRUGS (2)
  1. CARBOPLATIN. [Suspect]
     Active Substance: CARBOPLATIN
     Dates: end: 20170919
  2. TAXOL [Suspect]
     Active Substance: PACLITAXEL
     Dates: end: 20170919

REACTIONS (10)
  - Productive cough [None]
  - Pneumonia [None]
  - Hyperhidrosis [None]
  - Dyspnoea [None]
  - Oral pain [None]
  - Asthenia [None]
  - Chills [None]
  - Pulmonary embolism [None]
  - Pyrexia [None]
  - Dehydration [None]

NARRATIVE: CASE EVENT DATE: 20171024
